FAERS Safety Report 6737322-5 (Version None)
Quarter: 2010Q2

REPORT INFORMATION
  Report Type: 
  Country: None (occurrence: None)
  Receive Date: 20100524
  Receipt Date: 20100513
  Transmission Date: 20101027
  Serious: Yes (Other)
  Sender: FDA-Public Use
  Company Number: US-SHIRE-SPV1-2010-00944

PATIENT
  Sex: Female

DRUGS (2)
  1. CARBATROL [Suspect]
     Indication: DRUG USE FOR UNKNOWN INDICATION
  2. GSK DENTURE ADHESIVE [Suspect]
     Indication: DENTURE WEARER

REACTIONS (2)
  - BRAIN NEOPLASM [None]
  - DRUG INTERACTION [None]
